FAERS Safety Report 6028775-9 (Version None)
Quarter: 2009Q1

REPORT INFORMATION
  Report Type: 
  Country: None (occurrence: None)
  Receive Date: 20090106
  Receipt Date: 20081229
  Transmission Date: 20090719
  Serious: Yes (Other)
  Sender: FDA-Public Use
  Company Number: B0542805A

PATIENT
  Age: 78 Year
  Sex: Male
  Weight: 87 kg

DRUGS (6)
  1. ARIXTRA [Suspect]
     Indication: ACUTE CORONARY SYNDROME
     Dosage: 2.5MG PER DAY
     Route: 065
     Dates: start: 20080926, end: 20081003
  2. ISCOVER [Suspect]
     Indication: DRUG USE FOR UNKNOWN INDICATION
     Dosage: 300MG PER DAY
     Route: 065
     Dates: start: 20080926, end: 20081003
  3. NITRATES [Concomitant]
  4. BETA-BLOCKER [Concomitant]
  5. ACE INHIBITOR [Concomitant]
  6. ASPIRIN [Concomitant]

REACTIONS (2)
  - HEPATIC ENZYME INCREASED [None]
  - HEPATITIS [None]
